FAERS Safety Report 5531263-7 (Version None)
Quarter: 2007Q4

REPORT INFORMATION
  Report Type: 
  Country: None (occurrence: None)
  Receive Date: 20071127
  Receipt Date: 20071114
  Transmission Date: 20080405
  Serious: Yes (Other)
  Sender: FDA-Public Use
  Company Number: 2007SP020827

PATIENT
  Age: 48 Year
  Sex: Female

DRUGS (3)
  1. INTRON A [Suspect]
     Indication: MALIGNANT MELANOMA
     Dosage: 34 MIU, IV; 24 MIU;
     Route: 042
     Dates: start: 20061120, end: 20061205
  2. INTRON A [Suspect]
     Indication: MALIGNANT MELANOMA
     Dosage: 34 MIU, IV; 24 MIU;
     Route: 042
     Dates: start: 20061206, end: 20061213
  3. INTRON A [Suspect]
     Dosage: 5 MIU, SC
     Route: 058
     Dates: start: 20070228, end: 20070525

REACTIONS (8)
  - AUTOIMMUNE HEPATITIS [None]
  - DRUG TOXICITY [None]
  - HALLUCINATION [None]
  - HYPOACUSIS [None]
  - OEDEMATOUS PANCREATITIS [None]
  - SENSORY DISTURBANCE [None]
  - TINNITUS [None]
  - VASCULITIS [None]
